FAERS Safety Report 13368397 (Version 2)
Quarter: 2017Q3

REPORT INFORMATION
  Report Type: Report from Study
  Country: US (occurrence: US)
  Receive Date: 20170324
  Receipt Date: 20170827
  Transmission Date: 20171127
  Serious: No
  Sender: FDA-Public Use
  Company Number: US-AMGEN-USASL2017042004

PATIENT
  Age: 40 Year
  Sex: Female

DRUGS (3)
  1. ENBREL [Suspect]
     Active Substance: ETANERCEPT
     Indication: RHEUMATOID ARTHRITIS
     Dosage: 50 MG, QWK
     Route: 065
     Dates: end: 2017
  2. ENBREL [Suspect]
     Active Substance: ETANERCEPT
     Dosage: 50 MG, QWK
     Route: 065
     Dates: start: 2017
  3. ENBREL [Suspect]
     Active Substance: ETANERCEPT
     Dosage: 50 MG, QWK
     Route: 065
     Dates: start: 2017, end: 201707

REACTIONS (11)
  - Injection site haemorrhage [Unknown]
  - Head discomfort [Unknown]
  - Dizziness [Unknown]
  - Dyspnoea [Unknown]
  - Injection site pain [Unknown]
  - Sinusitis [Unknown]
  - Headache [Unknown]
  - Mobility decreased [Unknown]
  - Malaise [Unknown]
  - Arthralgia [Unknown]
  - Asthma [Unknown]

NARRATIVE: CASE EVENT DATE: 2017
